FAERS Safety Report 12137186 (Version 1)
Quarter: 2016Q1

REPORT INFORMATION
  Report Type: Spontaneous
  Country: US (occurrence: US)
  Receive Date: 20160302
  Receipt Date: 20160302
  Transmission Date: 20160526
  Serious: No
  Sender: FDA-Public Use
  Company Number: US-INSYS THERAPEUTICS, INC-INS201505-000221

PATIENT
  Age: 66 Year
  Sex: Female

DRUGS (7)
  1. VALIUM [Concomitant]
     Active Substance: DIAZEPAM
  2. SUBSYS [Suspect]
     Active Substance: FENTANYL
     Indication: SPINAL PAIN
     Dates: start: 20150901
  3. TRAZODONE [Concomitant]
     Active Substance: TRAZODONE HYDROCHLORIDE
  4. OXYCONTIN [Concomitant]
     Active Substance: OXYCODONE HYDROCHLORIDE
  5. AGGRENOX [Concomitant]
     Active Substance: ASPIRIN\DIPYRIDAMOLE
  6. GABAPENTIN. [Concomitant]
     Active Substance: GABAPENTIN
  7. SUBSYS [Suspect]
     Active Substance: FENTANYL
     Dates: start: 20150429

REACTIONS (4)
  - Sleep disorder [Not Recovered/Not Resolved]
  - Off label use [Unknown]
  - Product quality issue [Unknown]
  - Drug ineffective [Unknown]

NARRATIVE: CASE EVENT DATE: 20150429
